FAERS Safety Report 7356334-4 (Version None)
Quarter: 2011Q1

REPORT INFORMATION
  Report Type: 
  Country: None (occurrence: None)
  Receive Date: 20110316
  Receipt Date: 20110309
  Transmission Date: 20110831
  Serious: Yes (Death, Other)
  Sender: FDA-Public Use
  Company Number: ES-MILLENNIUM PHARMACEUTICALS, INC.-2011-00970

PATIENT
  Age: 63 Year
  Sex: Female

DRUGS (2)
  1. VELCADE [Suspect]
     Indication: MULTIPLE MYELOMA
  2. DEXAMETHASONE [Suspect]
     Indication: MULTIPLE MYELOMA

REACTIONS (2)
  - PLASMACYTOMA [None]
  - DEATH [None]
